FAERS Safety Report 7648887-3 (Version None)
Quarter: 2011Q3

REPORT INFORMATION
  Report Type: 
  Country: None (occurrence: None)
  Receive Date: 20110801
  Receipt Date: 20110726
  Transmission Date: 20111222
  Serious: Yes (Hospitalization)
  Sender: FDA-Public Use
  Company Number: US-GILEAD-2011-0040982

PATIENT
  Sex: Female

DRUGS (3)
  1. TYVASO [Concomitant]
  2. ADCIRCA [Concomitant]
  3. LETAIRIS [Suspect]
     Indication: PULMONARY HYPERTENSION
     Route: 048
     Dates: start: 20110405

REACTIONS (11)
  - PNEUMONIA [None]
  - NAUSEA [None]
  - BRONCHITIS [None]
  - PRESYNCOPE [None]
  - WHITE BLOOD CELL COUNT INCREASED [None]
  - ABDOMINAL PAIN [None]
  - INSOMNIA [None]
  - DYSPNOEA [None]
  - ASTHENIA [None]
  - DIZZINESS [None]
  - ABDOMINAL DISCOMFORT [None]
